FAERS Safety Report 11061435 (Version 1)
Quarter: 2015Q2

REPORT INFORMATION
  Report Type: Spontaneous
  Country: US (occurrence: US)
  Receive Date: 20150424
  Receipt Date: 20150424
  Transmission Date: 20150821
  Serious: No
  Sender: FDA-Public Use
  Company Number: US-PFIZER INC-2015126262

PATIENT
  Age: 57 Year
  Sex: Female
  Weight: 74.83 kg

DRUGS (4)
  1. ECONAZOLE [Concomitant]
     Active Substance: ECONAZOLE
     Indication: TINEA PEDIS
     Dosage: UNK
  2. REVATIO [Suspect]
     Active Substance: SILDENAFIL CITRATE
     Indication: SKIN ULCER
     Dosage: 40 MG, 3X/DAY
     Route: 048
  3. REVATIO [Suspect]
     Active Substance: SILDENAFIL CITRATE
     Indication: SCLERODERMA
  4. MORPHINE [Concomitant]
     Active Substance: MORPHINE
     Dosage: UNK, MORPHINE MEDICATION PUMP

REACTIONS (3)
  - Therapeutic response unexpected [Unknown]
  - Pre-existing condition improved [Unknown]
  - Product use issue [Unknown]
